FAERS Safety Report 5520993-9 (Version None)
Quarter: 2007Q4

REPORT INFORMATION
  Report Type: 
  Country: None (occurrence: None)
  Receive Date: 20071119
  Receipt Date: 20071106
  Transmission Date: 20080405
  Serious: Yes (Other)
  Sender: FDA-Public Use
  Company Number: SK-ROCHE-530001

PATIENT
  Age: 33 Year
  Sex: Male

DRUGS (4)
  1. PEGASYS [Suspect]
     Route: 065
     Dates: start: 20070608
  2. PEGASYS [Suspect]
     Route: 065
  3. COPEGUS [Suspect]
     Route: 065
     Dates: start: 20070608
  4. COPEGUS [Suspect]
     Route: 065

REACTIONS (3)
  - INFLUENZA LIKE ILLNESS [None]
  - PULMONARY EMBOLISM [None]
  - THROMBOSIS [None]
